FAERS Safety Report 8618429-4 (Version None)
Quarter: 2012Q3

REPORT INFORMATION
  Report Type: 
  Country: None (occurrence: None)
  Receive Date: 20120824
  Receipt Date: 20120820
  Transmission Date: 20120928
  Serious: No
  Sender: FDA-Public Use
  Company Number: US-BIOGENIDEC-2012BI032758

PATIENT
  Sex: Male

DRUGS (3)
  1. AVONEX [Suspect]
     Indication: MULTIPLE SCLEROSIS
     Route: 030
     Dates: start: 20030224
  2. AVONEX [Suspect]
     Route: 030
     Dates: start: 20110801
  3. AVONEX [Suspect]
     Route: 030
     Dates: start: 20110801

REACTIONS (2)
  - CONCUSSION [None]
  - MEMORY IMPAIRMENT [None]
